FAERS Safety Report 11830716 (Version 1)
Quarter: 2015Q4

REPORT INFORMATION
  Report Type: Spontaneous
  Country: AR (occurrence: AR)
  Receive Date: 20151214
  Receipt Date: 20151214
  Transmission Date: 20160305
  Serious: Yes (Other)
  Sender: FDA-Public Use
  Company Number: AR-AMGEN-ARGSP2015122815

PATIENT
  Age: 52 Year
  Sex: Female

DRUGS (3)
  1. METHOTREXATO                       /00113801/ [Concomitant]
     Dosage: UNK
     Dates: start: 2010
  2. FLEXIDOL                           /01007201/ [Concomitant]
     Dosage: UNK
     Dates: start: 2010
  3. ENBREL [Suspect]
     Active Substance: ETANERCEPT
     Indication: RHEUMATOID ARTHRITIS
     Dosage: 50 MG, WEEKLY
     Route: 065
     Dates: start: 20100715

REACTIONS (3)
  - Bronchospasm [Recovered/Resolved]
  - Malaise [Recovered/Resolved]
  - Back pain [Recovered/Resolved]

NARRATIVE: CASE EVENT DATE: 201508
